FAERS Safety Report 7422610-X (Version None)
Quarter: 2011Q2

REPORT INFORMATION
  Report Type: 
  Country: None (occurrence: None)
  Receive Date: 20110419
  Receipt Date: 20110412
  Transmission Date: 20111010
  Serious: Yes (Hospitalization)
  Sender: FDA-Public Use
  Company Number: US-ELI_LILLY_AND_COMPANY-US201104004711

PATIENT
  Age: 81 Year
  Sex: Female

DRUGS (4)
  1. HUMALOG [Suspect]
     Indication: DIABETES MELLITUS
     Dosage: 8 U, QD
     Dates: start: 19950101
  2. HUMULIN N [Suspect]
     Indication: DIABETES MELLITUS
     Dosage: 20 U, BID
     Dates: start: 19950101, end: 20110411
  3. METFORMIN [Concomitant]
     Dosage: UNK
  4. HUMULIN N [Suspect]
     Dosage: 20 U, BID
     Dates: start: 20110411

REACTIONS (3)
  - INCORRECT DOSE ADMINISTERED [None]
  - CARDIAC FAILURE CONGESTIVE [None]
  - DIABETIC FOOT [None]
